FAERS Safety Report 8603961-X (Version None)
Quarter: 2012Q3

REPORT INFORMATION
  Report Type: 
  Country: None (occurrence: None)
  Receive Date: 20120820
  Receipt Date: 20120810
  Transmission Date: 20120928
  Serious: Yes (Hospitalization)
  Sender: FDA-Public Use
  Company Number: AU-BIOGENIDEC-2012BI007718

PATIENT
  Sex: Female

DRUGS (4)
  1. NEXIUM [Concomitant]
  2. VYTORIN [Concomitant]
  3. MICARDIS [Concomitant]
  4. AVONEX [Suspect]
     Indication: MULTIPLE SCLEROSIS
     Route: 030

REACTIONS (2)
  - DEMYELINATION [None]
  - CENTRAL NERVOUS SYSTEM LESION [None]
